FAERS Safety Report 17498988 (Version 1)
Quarter: 2020Q1

REPORT INFORMATION
  Report Type: Spontaneous
  Country: US (occurrence: US)
  Receive Date: 20200304
  Receipt Date: 20200304
  Transmission Date: 20200409
  Serious: No
  Sender: FDA-Public Use
  Company Number: US-BAUSCH-BL-2020-005135

PATIENT
  Age: 11 Year
  Sex: Female
  Weight: 53.57 kg

DRUGS (3)
  1. OPCON-A [Suspect]
     Active Substance: NAPHAZOLINE HYDROCHLORIDE\PHENIRAMINE MALEATE
     Indication: MUSCLE TWITCHING
     Dosage: THE PATIENT CONTINUED TO USE THE PRODUCT ON HER LEFT EYE ONLY, THREE TO FOUR TIMES A DAY
     Route: 047
     Dates: start: 20200210, end: 20200213
  2. OPCON-A [Suspect]
     Active Substance: NAPHAZOLINE HYDROCHLORIDE\PHENIRAMINE MALEATE
     Indication: EYE PRURITUS
  3. CELEBREX [Concomitant]
     Active Substance: CELECOXIB
     Indication: PRODUCT USED FOR UNKNOWN INDICATION
     Dosage: AS NEEDED
     Route: 048

REACTIONS (7)
  - Eye pruritus [Not Recovered/Not Resolved]
  - Eye irritation [Recovered/Resolved]
  - Mydriasis [Not Recovered/Not Resolved]
  - Eye discharge [Not Recovered/Not Resolved]
  - Abnormal sensation in eye [Not Recovered/Not Resolved]
  - Eye pain [Not Recovered/Not Resolved]
  - Intentional product misuse [Recovered/Resolved]

NARRATIVE: CASE EVENT DATE: 202002
